FAERS Safety Report 11842329 (Version 1)
Quarter: 2015Q4

REPORT INFORMATION
  Report Type: Spontaneous
  Country: US (occurrence: None)
  Receive Date: 20151216
  Receipt Date: 20151216
  Transmission Date: 20160305
  Serious: Yes (Hospitalization, Disabling)
  Sender: FDA-Public Use
  Company Number: None

PATIENT
  Age: 80 Year
  Sex: Female
  Weight: 63.05 kg

DRUGS (32)
  1. FLAXSEED [Concomitant]
     Active Substance: FLAX SEED
  2. CINNAMON. [Concomitant]
     Active Substance: CINNAMON
  3. VITAMIN B12 [Concomitant]
     Active Substance: CYANOCOBALAMIN
  4. HUMALOG PEN [Concomitant]
     Active Substance: INSULIN LISPRO
  5. NITRO [Concomitant]
     Active Substance: NITROGLYCERIN
  6. POTASSIUM [Concomitant]
     Active Substance: POTASSIUM
  7. ACIDOPHILIS [Concomitant]
     Active Substance: LACTOBACILLUS ACIDOPHILUS
  8. CALCIUM [Concomitant]
     Active Substance: CALCIUM
  9. ZADATOR EYE DROPS [Concomitant]
  10. MINOXIDIL. [Concomitant]
     Active Substance: MINOXIDIL
  11. FOLIC ACID. [Concomitant]
     Active Substance: FOLIC ACID
  12. COMPLETE B [Concomitant]
  13. VITAMIN E [Concomitant]
     Active Substance: .ALPHA.-TOCOPHEROL
  14. VITAMIN C [Concomitant]
     Active Substance: ASCORBIC ACID
  15. CLOPIDOGREL BISULFATE 75MG. GENERIC FOR PLAVIX [Suspect]
     Active Substance: CLOPIDOGREL BISULFATE
     Indication: STENT PLACEMENT
     Dosage: 1/2 PILL 1 DAILY BY MOUTH
     Route: 048
     Dates: start: 201504
  16. ASPIRIN. [Concomitant]
     Active Substance: ASPIRIN
  17. HAWTHORN BERRIES [Concomitant]
  18. MESOZANTHENE [Concomitant]
  19. MULTIPLE VITAMINS [Concomitant]
     Active Substance: VITAMINS
  20. CHROMIUM PICOLONATE [Concomitant]
  21. TUMS [Concomitant]
     Active Substance: CALCIUM CARBONATE
  22. VITAMIN D [Concomitant]
     Active Substance: CHOLECALCIFEROL
  23. MAGNESIUM [Concomitant]
     Active Substance: MAGNESIUM
  24. GAS-X [Concomitant]
     Active Substance: DIMETHICONE
  25. L-ARGENINE [Concomitant]
  26. COQ10 [Concomitant]
     Active Substance: UBIDECARENONE
  27. GARLIC. [Concomitant]
     Active Substance: GARLIC
  28. TUMERIC [Concomitant]
     Active Substance: TURMERIC
  29. XANAX [Concomitant]
     Active Substance: ALPRAZOLAM
  30. ALPHA LYPOIC ACID [Concomitant]
  31. SOY LECITHIN [Concomitant]
  32. ZINC [Concomitant]
     Active Substance: ZINC\ZINC CHLORIDE

REACTIONS (26)
  - Flatulence [None]
  - Epistaxis [None]
  - Weight decreased [None]
  - Gait disturbance [None]
  - Dyspnoea [None]
  - Headache [None]
  - Vision blurred [None]
  - Dyspepsia [None]
  - Malaise [None]
  - Abdominal distension [None]
  - Back pain [None]
  - Rash papular [None]
  - Tension headache [None]
  - Skin discolouration [None]
  - Nausea [None]
  - Gastrointestinal disorder [None]
  - Skin atrophy [None]
  - Chest pain [None]
  - Confusional state [None]
  - Activities of daily living impaired [None]
  - Constipation [None]
  - Asthenia [None]
  - Blood pressure increased [None]
  - Nasal oedema [None]
  - Hypoaesthesia [None]
  - Pruritus [None]
